FAERS Safety Report 11808602 (Version 1)
Quarter: 2015Q4

REPORT INFORMATION
  Report Type: Spontaneous
  Country: US (occurrence: US)
  Receive Date: 20151207
  Receipt Date: 20151207
  Transmission Date: 20160305
  Serious: No
  Sender: FDA-Public Use
  Company Number: US-ROCHE-1590077

PATIENT
  Sex: Female

DRUGS (7)
  1. VICODIN [Concomitant]
     Active Substance: ACETAMINOPHEN\HYDROCODONE BITARTRATE
     Indication: PAIN
     Dosage: AS NEEDED
     Route: 065
  2. VALIUM [Suspect]
     Active Substance: DIAZEPAM
     Indication: CYSTITIS INTERSTITIAL
     Dosage: 4 TIMES A DAY
     Route: 065
  3. VALIUM [Suspect]
     Active Substance: DIAZEPAM
     Dosage: 2 OR 3 TIMES A DAY
     Route: 065
  4. LEVAQUIN [Concomitant]
     Active Substance: LEVOFLOXACIN
     Indication: INFECTION
     Dosage: AS NEEDED
     Route: 065
  5. VITAMIN C [Concomitant]
     Active Substance: ASCORBIC ACID
  6. AMITRIPTYLINE [Concomitant]
     Active Substance: AMITRIPTYLINE
     Dosage: AT BEDTIME
     Route: 065
  7. OXYBUTYNIN [Concomitant]
     Active Substance: OXYBUTYNIN
     Dosage: THREE TIMES A DAY
     Route: 065

REACTIONS (13)
  - Constipation [Recovering/Resolving]
  - Pain [Recovering/Resolving]
  - Emotional distress [Unknown]
  - Depression [Unknown]
  - Nephrolithiasis [Recovering/Resolving]
  - Tremor [Unknown]
  - Micturition urgency [Recovering/Resolving]
  - Pyrexia [Unknown]
  - Burning sensation [Recovering/Resolving]
  - Malaise [Unknown]
  - Influenza like illness [Unknown]
  - Feeling abnormal [Unknown]
  - Micturition disorder [Recovering/Resolving]
